FAERS Safety Report 24403778 (Version 1)
Quarter: 2024Q4

REPORT INFORMATION
  Report Type: Spontaneous
  Country: CN (occurrence: CN)
  Receive Date: 20241007
  Receipt Date: 20241007
  Transmission Date: 20250114
  Serious: No
  Sender: ROCHE
  Company Number: CN-ROCHE-3354096

PATIENT
  Age: 57 Year
  Sex: Male

DRUGS (53)
  1. GAZYVA [Suspect]
     Active Substance: OBINUTUZUMAB
     Indication: Diffuse large B-cell lymphoma
     Dosage: G-CMOP
     Route: 042
     Dates: start: 20221104
  2. GAZYVA [Suspect]
     Active Substance: OBINUTUZUMAB
     Dosage: OBINUTUZUMAB COMBINED WITH HYPERCVAD REGIMEN B
     Route: 042
  3. MABTHERA [Suspect]
     Active Substance: RITUXIMAB
     Indication: Diffuse large B-cell lymphoma
     Route: 065
  4. POLIVY [Concomitant]
     Active Substance: POLATUZUMAB VEDOTIN-PIIQ
     Indication: Diffuse large B-cell lymphoma
     Dosage: POLA+BR, 3-APR-2023, 24-APR-2023
     Route: 065
  5. BENDAMUSTINE [Concomitant]
     Active Substance: BENDAMUSTINE
     Indication: Diffuse large B-cell lymphoma
     Dosage: POLA+BR, 3-APR-2023, 24-APR-2023
     Route: 065
  6. METHOTREXATE [Concomitant]
     Active Substance: METHOTREXATE
     Indication: Diffuse large B-cell lymphoma
     Dosage: OBINUTUZUMAB COMBINED WITH HYPERCVAD REGIMEN B
  7. CYTARABINE [Concomitant]
     Active Substance: CYTARABINE
     Indication: Diffuse large B-cell lymphoma
     Dosage: OBINUTUZUMAB COMBINED WITH HYPERCVAD REGIMEN B
  8. CYCLOPHOSPHAMIDE [Concomitant]
     Active Substance: CYCLOPHOSPHAMIDE
     Indication: Diffuse large B-cell lymphoma
     Dosage: R-CHOP
     Route: 065
     Dates: start: 20210214
  9. CYCLOPHOSPHAMIDE [Concomitant]
     Active Substance: CYCLOPHOSPHAMIDE
     Dosage: R-CEOP90
     Route: 065
     Dates: start: 20210302
  10. CYCLOPHOSPHAMIDE [Concomitant]
     Active Substance: CYCLOPHOSPHAMIDE
     Dosage: CHP
     Route: 065
  11. CYCLOPHOSPHAMIDE [Concomitant]
     Active Substance: CYCLOPHOSPHAMIDE
     Dosage: CHOPE
     Route: 065
     Dates: start: 20210721
  12. CYCLOPHOSPHAMIDE [Concomitant]
     Active Substance: CYCLOPHOSPHAMIDE
     Dosage: CHOPE
     Route: 065
     Dates: start: 20220721
  13. CYCLOPHOSPHAMIDE [Concomitant]
     Active Substance: CYCLOPHOSPHAMIDE
     Dosage: G-CMOP
     Route: 065
     Dates: start: 20221104
  14. DOXORUBICIN [Concomitant]
     Active Substance: DOXORUBICIN
     Indication: Diffuse large B-cell lymphoma
     Dosage: R-CHOP
     Route: 065
     Dates: start: 20210214
  15. DOXORUBICIN [Concomitant]
     Active Substance: DOXORUBICIN
     Dosage: CHP
     Route: 065
  16. DOXORUBICIN [Concomitant]
     Active Substance: DOXORUBICIN
     Dosage: CHOPE
     Route: 065
     Dates: start: 20210721
  17. DOXORUBICIN [Concomitant]
     Active Substance: DOXORUBICIN
     Dosage: CHOPE
     Route: 065
     Dates: start: 20220721
  18. VINCRISTINE [Concomitant]
     Active Substance: VINCRISTINE
     Indication: Diffuse large B-cell lymphoma
     Dosage: R-CHOP
     Route: 065
     Dates: start: 20210214
  19. VINCRISTINE [Concomitant]
     Active Substance: VINCRISTINE
     Dosage: R-CEOP90
     Route: 065
     Dates: start: 20210302
  20. VINCRISTINE [Concomitant]
     Active Substance: VINCRISTINE
     Dosage: CHOPE
     Route: 065
     Dates: start: 20210721
  21. VINCRISTINE [Concomitant]
     Active Substance: VINCRISTINE
     Dosage: CHOPE
     Route: 065
     Dates: start: 20220721
  22. VINCRISTINE [Concomitant]
     Active Substance: VINCRISTINE
     Dosage: G-CMOP
     Route: 065
     Dates: start: 20221104
  23. PREDNISONE [Concomitant]
     Active Substance: PREDNISONE
     Indication: Diffuse large B-cell lymphoma
     Dosage: R-CHOP
     Route: 065
     Dates: start: 20210214
  24. PREDNISONE [Concomitant]
     Active Substance: PREDNISONE
     Dosage: R-CEOP90
     Route: 065
     Dates: start: 20210302
  25. PREDNISONE [Concomitant]
     Active Substance: PREDNISONE
     Dosage: CHP
     Route: 065
  26. PREDNISONE [Concomitant]
     Active Substance: PREDNISONE
     Dosage: CHOPE
     Dates: start: 20210721
  27. PREDNISONE [Concomitant]
     Active Substance: PREDNISONE
     Dosage: CHOPE
     Dates: start: 20220721
  28. PREDNISONE [Concomitant]
     Active Substance: PREDNISONE
     Dosage: G-CMOP
     Dates: start: 20221104
  29. ETOPOSIDE [Concomitant]
     Active Substance: ETOPOSIDE
     Indication: Diffuse large B-cell lymphoma
     Dosage: CHOPE
     Route: 065
     Dates: start: 20210721
  30. ETOPOSIDE [Concomitant]
     Active Substance: ETOPOSIDE
     Dosage: R-DICE, 28-OCT-2021 AND 23-NOV-2021
     Route: 065
  31. ETOPOSIDE [Concomitant]
     Active Substance: ETOPOSIDE
     Dosage: R-ICE+BV
     Route: 065
     Dates: start: 20211215
  32. ETOPOSIDE [Concomitant]
     Active Substance: ETOPOSIDE
     Dosage: CHOPE
     Route: 065
     Dates: start: 20220721
  33. DEXAMETHASONE [Concomitant]
     Active Substance: DEXAMETHASONE
     Indication: Diffuse large B-cell lymphoma
     Dosage: R-DICE, 28-OCT-2021 AND 23-NOV-2021
     Route: 065
  34. EPIRUBICIN [Concomitant]
     Active Substance: EPIRUBICIN
     Indication: Diffuse large B-cell lymphoma
     Dosage: R-CEOP90
     Dates: start: 20210302
  35. IFOSFAMIDE [Concomitant]
     Active Substance: IFOSFAMIDE
     Indication: Diffuse large B-cell lymphoma
     Dosage: R-DICE, 28-OCT-2021 AND 23-NOV-2021
     Route: 065
  36. IFOSFAMIDE [Concomitant]
     Active Substance: IFOSFAMIDE
     Dosage: R-ICE+BV
     Route: 065
     Dates: start: 20211215
  37. CISPLATIN [Concomitant]
     Active Substance: CISPLATIN
     Indication: Diffuse large B-cell lymphoma
     Dosage: R-DICE, 28-OCT-2021 AND 23-NOV-2021
     Route: 065
  38. CISPLATIN [Concomitant]
     Active Substance: CISPLATIN
     Dosage: R-ICE+BV
     Route: 065
     Dates: start: 20211215
  39. BRENTUXIMAB VEDOTIN [Concomitant]
     Active Substance: BRENTUXIMAB VEDOTIN
     Indication: Diffuse large B-cell lymphoma
     Dosage: R-ICE+BV
     Dates: start: 20211215
  40. GEMCITABINE [Concomitant]
     Active Substance: GEMCITABINE
     Indication: Diffuse large B-cell lymphoma
     Dosage: R-GEMOX
     Route: 065
     Dates: start: 20220209
  41. GEMCITABINE [Concomitant]
     Active Substance: GEMCITABINE
     Dosage: R-GEMOX + SELINEXOR
     Route: 065
     Dates: start: 20220705
  42. OXALIPLATIN [Concomitant]
     Active Substance: OXALIPLATIN
     Indication: Diffuse large B-cell lymphoma
     Dosage: R-GEMOX
     Route: 065
     Dates: start: 20220209
  43. OXALIPLATIN [Concomitant]
     Active Substance: OXALIPLATIN
     Dosage: R-GEMOX + SELINEXOR
     Route: 065
     Dates: start: 20220705
  44. SELINEXOR [Concomitant]
     Active Substance: SELINEXOR
     Indication: Diffuse large B-cell lymphoma
     Dosage: R-GEMOX + SELINEXOR
     Dates: start: 20220705
  45. RITUXIMAB [Concomitant]
     Active Substance: RITUXIMAB
     Indication: Diffuse large B-cell lymphoma
     Dosage: R-CHOP
     Dates: start: 20210214
  46. RITUXIMAB [Concomitant]
     Active Substance: RITUXIMAB
     Dosage: R-CEOP90
     Dates: start: 20210302
  47. RITUXIMAB [Concomitant]
     Active Substance: RITUXIMAB
     Dosage: R
     Dates: start: 20210716
  48. RITUXIMAB [Concomitant]
     Active Substance: RITUXIMAB
     Dosage: R-DICE, 28-OCT-2021 AND 23-NOV-2021
  49. RITUXIMAB [Concomitant]
     Active Substance: RITUXIMAB
     Dosage: R-ICE+BV
     Dates: start: 20211215
  50. RITUXIMAB [Concomitant]
     Active Substance: RITUXIMAB
     Dosage: R-GEMOX
     Dates: start: 20220209
  51. RITUXIMAB [Concomitant]
     Active Substance: RITUXIMAB
     Dosage: R-GEMOX+SELINEXOR
     Dates: start: 20220705
  52. RITUXIMAB [Concomitant]
     Active Substance: RITUXIMAB
     Dosage: POLA+BR, 3-APR-2023, 24-APR-2023, 16-MAY-2023, 07-JUN-2023, 31-AUG-2023
  53. MITOXANTRONE [Concomitant]
     Active Substance: MITOXANTRONE HYDROCHLORIDE
     Indication: Diffuse large B-cell lymphoma
     Dosage: G-CMOP
     Dates: start: 20221104

REACTIONS (3)
  - Infection [Unknown]
  - Intentional product use issue [Unknown]
  - Disease progression [Unknown]
